FAERS Safety Report 15473820 (Version 2)
Quarter: 2018Q4

REPORT INFORMATION
  Report Type: Spontaneous
  Country: US (occurrence: US)
  Receive Date: 20181008
  Receipt Date: 20181026
  Transmission Date: 20190205
  Serious: Yes (Other)
  Sender: FDA-Public Use
  Company Number: US-TEVA-2018-US-961780

PATIENT
  Age: 51 Year
  Sex: Female

DRUGS (4)
  1. NEOMYCIN. [Suspect]
     Active Substance: NEOMYCIN
     Dosage: APPLIED AT ULCER AND PACKED WITH BANDAGE
     Route: 061
  2. TDAP (TETANUS-DIPHTHERIA-ACELLULAR PERTUSSIS) [Suspect]
     Active Substance: DIPHTHERIA AND TETANUS TOXOIDS AND PERTUSSIS VACCINE
     Indication: IMMUNISATION
     Route: 058
  3. PNEUMOVAX NOS [Suspect]
     Active Substance: PNEUMOCOCCAL VACCINE POLYVALENT
     Indication: IMMUNISATION
     Route: 058
  4. DOXYCYCLINE. [Concomitant]
     Active Substance: DOXYCYCLINE
     Indication: CONTUSION
     Dosage: SHORT COURSE
     Route: 065

REACTIONS (4)
  - Injection site necrosis [Unknown]
  - Injection site ulcer [Unknown]
  - Incorrect route of product administration [Unknown]
  - Type IV hypersensitivity reaction [Unknown]
